FAERS Safety Report 18555556 (Version 1)
Quarter: 2020Q4

REPORT INFORMATION
  Report Type: Spontaneous
  Country: US (occurrence: US)
  Receive Date: 20201127
  Receipt Date: 20201127
  Transmission Date: 20210114
  Serious: Yes (Hospitalization)
  Sender: FDA-Public Use
  Company Number: US-TAKEDA-2020TUS051412

PATIENT
  Sex: Male
  Weight: 21 kg

DRUGS (5)
  1. GAMMAGARD LIQUID [Suspect]
     Active Substance: HUMAN IMMUNOGLOBULIN G
     Indication: WISKOTT-ALDRICH SYNDROME
     Dosage: 5 GRAM, QD
     Route: 042
     Dates: start: 20200723
  2. AMICAR [Concomitant]
     Active Substance: AMINOCAPROIC ACID
  3. TIMOLOL. [Concomitant]
     Active Substance: TIMOLOL
  4. BACTRIM [Concomitant]
     Active Substance: SULFAMETHOXAZOLE\TRIMETHOPRIM
  5. PROMACTA [Concomitant]
     Active Substance: ELTROMBOPAG OLAMINE

REACTIONS (1)
  - Bone marrow transplant [Unknown]
